FAERS Safety Report 15871776 (Version 1)
Quarter: 2019Q1

REPORT INFORMATION
  Report Type: Spontaneous
  Country: US (occurrence: US)
  Receive Date: 20190126
  Receipt Date: 20190126
  Transmission Date: 20190417
  Serious: No
  Sender: FDA-Public Use
  Company Number: US-TEVA-2018-US-994144

PATIENT
  Age: 70 Year
  Sex: Female

DRUGS (2)
  1. ESZOPICLONE TEVA [Suspect]
     Active Substance: ESZOPICLONE
     Indication: SLEEP DISORDER
     Route: 065
  2. ESZOPICLONE TEVA [Suspect]
     Active Substance: ESZOPICLONE
     Indication: INSOMNIA

REACTIONS (2)
  - Drug ineffective [Unknown]
  - Product quality issue [Unknown]

NARRATIVE: CASE EVENT DATE: 201812
